FAERS Safety Report 9853544 (Version 1)
Quarter: 2014Q1

REPORT INFORMATION
  Report Type: Spontaneous
  Country: US (occurrence: US)
  Receive Date: 20140129
  Receipt Date: 20140129
  Transmission Date: 20141002
  Serious: Yes (Other)
  Sender: FDA-Public Use
  Company Number: US-GILEAD-2014-0093245

PATIENT
  Sex: Male

DRUGS (1)
  1. VIREAD [Suspect]
     Indication: HEPATITIS B
     Dosage: 300 MG, UNK
     Route: 048

REACTIONS (4)
  - Deafness unilateral [Unknown]
  - Tympanic membrane disorder [Unknown]
  - Amnesia [Unknown]
  - Headache [Unknown]
